FAERS Safety Report 6010691-X (Version None)
Quarter: 2008Q4

REPORT INFORMATION
  Report Type: 
  Country: None (occurrence: None)
  Receive Date: 20081218
  Receipt Date: 20081209
  Transmission Date: 20090506
  Serious: Yes (Other)
  Sender: FDA-Public Use
  Company Number: US-ROCHE-597152

PATIENT
  Sex: Female
  Weight: 63.5 kg

DRUGS (4)
  1. BONIVA [Suspect]
     Indication: OSTEOPOROSIS
     Dosage: FORM: PREFILLED SYRINGE, DOSE 3MG/ 3 ML
     Route: 042
     Dates: start: 20070101, end: 20070101
  2. CYMBALTA [Concomitant]
     Indication: DEPRESSION
     Dosage: DAILY
     Route: 048
     Dates: start: 20061025
  3. ATIVAN [Concomitant]
     Indication: ANXIETY
     Dosage: DOSAGE REGIMEN: Q6H PRN
     Route: 048
     Dates: start: 20071201
  4. AMBIEN CR [Concomitant]
     Indication: SLEEP DISORDER
     Dosage: DOSAGE REGIMEN: AS PRN
     Route: 048
     Dates: start: 20071201

REACTIONS (3)
  - BONE PAIN [None]
  - LOWER LIMB FRACTURE [None]
  - MYALGIA [None]
